FAERS Safety Report 6684934-3 (Version None)
Quarter: 2010Q2

REPORT INFORMATION
  Report Type: 
  Country: None (occurrence: None)
  Receive Date: 20100416
  Receipt Date: 20100409
  Transmission Date: 20101027
  Serious: Yes (Hospitalization)
  Sender: FDA-Public Use
  Company Number: US-ELI_LILLY_AND_COMPANY-US201003008600

PATIENT
  Sex: Male
  Weight: 64.399 kg

DRUGS (2)
  1. PEMETREXED [Suspect]
     Indication: NON-SMALL CELL LUNG CANCER
     Dosage: 500 MG/M2, OTHER
     Route: 042
     Dates: start: 20100323
  2. PACLITAXEL [Suspect]
     Indication: NON-SMALL CELL LUNG CANCER
     Dosage: 260 MG/M2, OTHER
     Route: 042
     Dates: start: 20100323

REACTIONS (15)
  - ANAEMIA [None]
  - BRONCHIAL OBSTRUCTION [None]
  - COLLAPSE OF LUNG [None]
  - DYSPNOEA [None]
  - EPISTAXIS [None]
  - HAEMATEMESIS [None]
  - HAEMOPTYSIS [None]
  - MALIGNANT NEOPLASM PROGRESSION [None]
  - NEUTROPENIA [None]
  - NON-SMALL CELL LUNG CANCER [None]
  - THROMBOCYTOPENIA [None]
  - TUMOUR NECROSIS [None]
  - TUMOUR THROMBOSIS [None]
  - WHITE BLOOD CELL COUNT DECREASED [None]
  - WHITE BLOOD CELL COUNT INCREASED [None]
